FAERS Safety Report 6512407-7 (Version None)
Quarter: 2009Q4

REPORT INFORMATION
  Report Type: 
  Country: None (occurrence: None)
  Receive Date: 20091222
  Receipt Date: 20091218
  Transmission Date: 20100525
  Serious: Yes (Other)
  Sender: FDA-Public Use
  Company Number: UG-GILEAD-2009-0026094

PATIENT
  Sex: Female

DRUGS (5)
  1. VIREAD [Suspect]
     Indication: HIV INFECTION
     Route: 048
     Dates: start: 20080507, end: 20080606
  2. VIREAD [Suspect]
     Route: 048
     Dates: start: 20031001, end: 20080312
  3. COMBIVIR [Concomitant]
     Indication: HIV INFECTION
     Route: 048
     Dates: start: 20080507
  4. COMBIVIR [Concomitant]
     Route: 048
     Dates: start: 20031001, end: 20080312
  5. NEVIRAPINE [Concomitant]
     Indication: HIV INFECTION
     Dates: start: 20080604

REACTIONS (1)
  - ABORTION SPONTANEOUS [None]
